FAERS Safety Report 7326509-9 (Version None)
Quarter: 2011Q1

REPORT INFORMATION
  Report Type: 
  Country: None (occurrence: None)
  Receive Date: 20110222
  Receipt Date: 20110204
  Transmission Date: 20110831
  Serious: Yes (Hospitalization)
  Sender: FDA-Public Use
  Company Number: UTC-005112

PATIENT
  Age: 53 Year
  Sex: Male

DRUGS (3)
  1. REMODULIN [Suspect]
     Indication: COR PULMONALE CHRONIC
     Dosage: 204.48 UG/KG (0.142 UG/KG, 1 IN 1 MIN), INTRAVENOUS
     Route: 042
     Dates: start: 20090401
  2. DIURETICS (DIURETICS) [Concomitant]
  3. ALBUTEROL (ACTIVAROL /00940601/ [Concomitant]

REACTIONS (2)
  - DYSPNOEA [None]
  - CONDITION AGGRAVATED [None]
